FAERS Safety Report 7576350-7 (Version None)
Quarter: 2011Q2

REPORT INFORMATION
  Report Type: 
  Country: None (occurrence: None)
  Receive Date: 20110628
  Receipt Date: 20110622
  Transmission Date: 20111010
  Serious: Yes (Death)
  Sender: FDA-Public Use
  Company Number: US-AMGEN-USASP2011030419

PATIENT
  Age: 62 Year
  Sex: Female
  Weight: 44.444 kg

DRUGS (3)
  1. NPLATE [Suspect]
     Indication: IDIOPATHIC THROMBOCYTOPENIC PURPURA
     Dosage: 3.3 A?G/KG, QWK
     Route: 058
     Dates: start: 20110503, end: 20110523
  2. CORTICOSTEROIDS [Concomitant]
  3. IVIGLOB-EX [Concomitant]

REACTIONS (2)
  - MULTIPLE MYELOMA [None]
  - RENAL FAILURE CHRONIC [None]
